FAERS Safety Report 17488746 (Version 1)
Quarter: 2020Q1

REPORT INFORMATION
  Report Type: Spontaneous
  Country: US (occurrence: US)
  Receive Date: 20200303
  Receipt Date: 20200303
  Transmission Date: 20200409
  Serious: Yes (Hospitalization, Disabling, Other)
  Sender: FDA-Public Use
  Company Number: US-JNJFOC-20200236318

PATIENT
  Age: 58 Year
  Sex: Female

DRUGS (1)
  1. INVOKANA [Suspect]
     Active Substance: CANAGLIFLOZIN
     Indication: PRODUCT USED FOR UNKNOWN INDICATION
     Route: 048

REACTIONS (8)
  - Skin ulcer [Unknown]
  - Osteomyelitis acute [Unknown]
  - Shock [Unknown]
  - Sepsis [Unknown]
  - Limb amputation [Unknown]
  - Dry gangrene [Unknown]
  - Cellulitis [Unknown]
  - Finger amputation [Unknown]

NARRATIVE: CASE EVENT DATE: 20150508
